FAERS Safety Report 7217041-1 (Version None)
Quarter: 2011Q1

REPORT INFORMATION
  Report Type: 
  Country: None (occurrence: None)
  Receive Date: 20110110
  Receipt Date: 20101214
  Transmission Date: 20110831
  Serious: No
  Sender: FDA-Public Use
  Company Number: US-B.I. PHARMACEUTICALS,INC./RIDGEFIELD-2010-BP-14438BP

PATIENT
  Age: 77 Year
  Sex: Male

DRUGS (3)
  1. BYSTOLIC [Concomitant]
     Indication: HYPERTENSION
     Route: 048
     Dates: start: 20100924
  2. LISINOPRIL [Concomitant]
     Indication: HYPERTENSION
     Route: 048
  3. PRADAXA [Suspect]
     Indication: ATRIAL FIBRILLATION
     Dosage: 300 MG
     Route: 048
     Dates: start: 20101201

REACTIONS (3)
  - NAUSEA [None]
  - DIZZINESS [None]
  - DYSPNOEA [None]
